FAERS Safety Report 16642259 (Version 1)
Quarter: 2019Q3

REPORT INFORMATION
  Report Type: Report from Study
  Country: US (occurrence: US)
  Receive Date: 20190729
  Receipt Date: 20190729
  Transmission Date: 20191004
  Serious: Yes (Hospitalization, Other)
  Sender: FDA-Public Use
  Company Number: US-JNJFOC-20190730684

PATIENT
  Age: 57 Year
  Sex: Female

DRUGS (6)
  1. MOTRIN [Concomitant]
     Active Substance: IBUPROFEN
  2. NICOTINE. [Concomitant]
     Active Substance: NICOTINE
  3. IMBRUVICA [Suspect]
     Active Substance: IBRUTINIB
     Indication: CHRONIC LYMPHOCYTIC LEUKAEMIA
     Dosage: 420 MG, QD
     Route: 048
     Dates: start: 20180606, end: 201907
  4. ADDERALL [Concomitant]
     Active Substance: AMPHETAMINE ASPARTATE\AMPHETAMINE SULFATE\DEXTROAMPHETAMINE SACCHARATE\DEXTROAMPHETAMINE SULFATE
  5. NORCO [Concomitant]
     Active Substance: ACETAMINOPHEN\HYDROCODONE BITARTRATE
  6. XANAX [Concomitant]
     Active Substance: ALPRAZOLAM

REACTIONS (3)
  - Bone neoplasm [Unknown]
  - Hepatic lesion [Unknown]
  - Brain neoplasm [Unknown]

NARRATIVE: CASE EVENT DATE: 20190712
